FAERS Safety Report 10612080 (Version 1)
Quarter: 2014Q4

REPORT INFORMATION
  Report Type: Report from Study
  Country: AU (occurrence: AU)
  Receive Date: 20141127
  Receipt Date: 20141127
  Transmission Date: 20150529
  Serious: Yes (Hospitalization)
  Sender: FDA-Public Use
  Company Number: AU-AMGEN-AUSCT2014090978

PATIENT
  Age: 76 Year
  Sex: Male
  Weight: 61.9 kg

DRUGS (3)
  1. PANITUMUMAB [Suspect]
     Active Substance: PANITUMUMAB
     Indication: COLORECTAL CANCER
     Dosage: 410 MG, UNK
     Route: 042
     Dates: start: 20141106
  2. IRINOTECAN [Concomitant]
     Active Substance: IRINOTECAN
     Indication: COLORECTAL CANCER
     Dosage: 370 MG, UNK
     Route: 042
     Dates: start: 20141106
  3. EVEROLIMUS [Concomitant]
     Active Substance: EVEROLIMUS
     Indication: COLORECTAL CANCER
     Dosage: 5 ML, ALTERNATE DAY
     Route: 048
     Dates: start: 20141106

REACTIONS (1)
  - Lethargy [Not Recovered/Not Resolved]

NARRATIVE: CASE EVENT DATE: 20141115
